FAERS Safety Report 5374870-7 (Version None)
Quarter: 2007Q2

REPORT INFORMATION
  Report Type: 
  Country: None (occurrence: None)
  Receive Date: 20070629
  Receipt Date: 20070621
  Transmission Date: 20071010
  Serious: Yes (Hospitalization)
  Sender: FDA-Public Use
  Company Number: B0477252A

PATIENT
  Age: 45 Year
  Sex: Male
  Weight: 112 kg

DRUGS (15)
  1. ALKERAN [Suspect]
     Dosage: 480MG PER DAY
     Route: 042
     Dates: start: 20070505, end: 20070505
  2. ZELITREX [Concomitant]
     Route: 065
     Dates: start: 20070201
  3. ZOFRAN [Concomitant]
     Dosage: 8MG THREE TIMES PER DAY
     Route: 042
     Dates: start: 20070505, end: 20070506
  4. NEURONTIN [Concomitant]
     Dosage: 300MG THREE TIMES PER DAY
     Route: 065
     Dates: start: 20070201
  5. BACTRIM DS [Concomitant]
     Route: 065
     Dates: start: 20070201
  6. SPECIAFOLDINE [Concomitant]
     Route: 065
     Dates: start: 20070201
  7. OMEPRAZOLE [Concomitant]
     Dosage: 20MG TWICE PER DAY
     Route: 048
     Dates: start: 20070504, end: 20070508
  8. DIANTALVIC [Concomitant]
     Route: 065
  9. DEXAMETHASONE 0.5MG TAB [Concomitant]
     Route: 065
     Dates: start: 20070505
  10. LAROXYL [Concomitant]
     Dosage: 40DROP PER DAY
     Route: 048
  11. FUNGIZONE [Concomitant]
     Route: 002
  12. GENTAMICIN [Concomitant]
     Dosage: 80MG TWICE PER DAY
     Route: 065
  13. VELCADE [Concomitant]
  14. CYCLOPHOSPHAMIDE [Concomitant]
     Dates: start: 20070323
  15. DEXAMETHASONE 0.5MG TAB [Concomitant]

REACTIONS (5)
  - BLOOD CREATININE INCREASED [None]
  - CREATININE RENAL CLEARANCE DECREASED [None]
  - GLOMERULONEPHRITIS ACUTE [None]
  - PROTEINURIA [None]
  - RENAL FAILURE ACUTE [None]
